FAERS Safety Report 7411627-7 (Version None)
Quarter: 2011Q2

REPORT INFORMATION
  Report Type: 
  Country: None (occurrence: None)
  Receive Date: 20110413
  Receipt Date: 20110408
  Transmission Date: 20111010
  Serious: Yes (Death, Hospitalization, Other)
  Sender: FDA-Public Use
  Company Number: PHHY2011CA24848

PATIENT
  Sex: Male

DRUGS (6)
  1. SEROQUEL [Concomitant]
     Dosage: 200 AT LUNCH AND HS, 300 AT 15H00
  2. COMTAN [Concomitant]
     Dosage: 200 MG, 5 TIMES PER DAY
  3. LITHIUM [Concomitant]
     Dosage: 300 UNK, TID
  4. CLOZARIL [Suspect]
     Indication: SCHIZOPHRENIA
     Dosage: 125 MG AM, 200 MG AT LUNCH, 500 MG QHS PO
     Route: 048
     Dates: start: 20081008
  5. SINEMET [Concomitant]
     Dosage: 1 TABLET TID AND 2 TABLETS AT 13H00 AND AT SUPER
  6. OZILECT [Concomitant]
     Dosage: 0.5 UNK, DAILY

REACTIONS (6)
  - HYPOXIA [None]
  - INFECTION [None]
  - PLEURAL EFFUSION [None]
  - EMPYEMA [None]
  - GENERAL PHYSICAL HEALTH DETERIORATION [None]
  - PNEUMONIA [None]
